FAERS Safety Report 19677646 (Version 1)
Quarter: 2021Q3

REPORT INFORMATION
  Report Type: Spontaneous
  Country: JP (occurrence: JP)
  Receive Date: 20210809
  Receipt Date: 20210809
  Transmission Date: 20211014
  Serious: Yes (Death, Other)
  Sender: FDA-Public Use
  Company Number: JP-ALLERGAN-2127668US

PATIENT

DRUGS (1)
  1. BOTOX [Suspect]
     Active Substance: ONABOTULINUMTOXINA
     Indication: TORTICOLLIS
     Dosage: UNK, SINGLE

REACTIONS (5)
  - Purpura [Unknown]
  - Death [Fatal]
  - Cardiac failure [Unknown]
  - Peripheral coldness [Unknown]
  - Oedema peripheral [Unknown]
